FAERS Safety Report 18023395 (Version 2)
Quarter: 2020Q3

REPORT INFORMATION
  Report Type: Report from Study
  Country: None (occurrence: US)
  Receive Date: 20200715
  Receipt Date: 20200812
  Transmission Date: 20201103
  Serious: Yes (Other)
  Sender: FDA-Public Use
  Company Number: US-ABBVIE-20K-163-3482552-00

PATIENT
  Sex: Male

DRUGS (1)
  1. HUMIRA [Suspect]
     Active Substance: ADALIMUMAB
     Indication: COLITIS ULCERATIVE
     Dosage: CITRATE FREE
     Route: 058

REACTIONS (4)
  - Haemorrhage [Recovered/Resolved]
  - Fistula [Not Recovered/Not Resolved]
  - Iron deficiency anaemia [Recovered/Resolved]
  - Abdominal pain upper [Not Recovered/Not Resolved]
